FAERS Safety Report 6883427-8 (Version None)
Quarter: 2010Q3

REPORT INFORMATION
  Report Type: 
  Country: None (occurrence: None)
  Receive Date: 20100727
  Receipt Date: 20100714
  Transmission Date: 20110219
  Serious: Yes (Disabling, Other)
  Sender: FDA-Public Use
  Company Number: ACO_01472_2010

PATIENT
  Sex: Female

DRUGS (1)
  1. AMPYRA [Suspect]
     Indication: GAIT DISTURBANCE
     Dosage: (DF ORAL)
     Route: 048
     Dates: start: 20100601

REACTIONS (3)
  - APHAGIA [None]
  - GASTROENTERITIS VIRAL [None]
  - REGURGITATION [None]
